FAERS Safety Report 8286364-X (Version None)
Quarter: 2012Q2

REPORT INFORMATION
  Report Type: 
  Country: None (occurrence: None)
  Receive Date: 20120411
  Receipt Date: 20120329
  Transmission Date: 20120825
  Serious: Yes (Hospitalization)
  Sender: FDA-Public Use
  Company Number: DSA_56050_2012

PATIENT
  Age: 76 Year
  Sex: Female

DRUGS (5)
  1. LOVENOX [Suspect]
     Indication: PRODUCT USED FOR UNKNOWN INDICATION
     Dosage: (4000 IU QD 2000 IU SUBCUTANEOUS)
     Route: 058
     Dates: start: 20110907
  2. CIPROFLOXACIN HYDROCHLORIDE [Suspect]
     Indication: SIGMOIDITIS
     Dosage: 9200 MG BID INTRAVENOUS (NOT OTHERWISE SPECIFIED)
     Route: 042
     Dates: start: 20110910, end: 20110915
  3. OFLOXACIN [Concomitant]
  4. GENTAMICIN [Concomitant]
  5. FLAGYL [Suspect]
     Indication: SIGMOIDITIS
     Dosage: (500 MG TID INTRAVENOUS (NOT OTHERWISE SPECIFIED)
     Route: 042
     Dates: start: 20110907, end: 20110916

REACTIONS (5)
  - OEDEMA PERIPHERAL [None]
  - URTICARIA [None]
  - PRURITUS [None]
  - RASH MORBILLIFORM [None]
  - ERYTHEMA [None]
